FAERS Safety Report 4445319-3 (Version None)
Quarter: 2004Q3

REPORT INFORMATION
  Report Type: 
  Country: None (occurrence: None)
  Receive Date: 20040730
  Receipt Date: 20040430
  Transmission Date: 20050211
  Serious: Yes (Other)
  Sender: FDA-Public Use
  Company Number: PHEH2004US04686

PATIENT
  Age: 83 Year
  Sex: Female
  Weight: 73.5 kg

DRUGS (3)
  1. GLEEVEC [Suspect]
     Indication: GASTROINTESTINAL STROMAL TUMOUR
     Dosage: 400 MG, QD, ORAL; SEE IMAGE
     Route: 048
     Dates: start: 20031029, end: 20031205
  2. GLEEVEC [Suspect]
     Indication: GASTROINTESTINAL STROMAL TUMOUR
     Dosage: 400 MG, QD, ORAL; SEE IMAGE
     Route: 048
     Dates: start: 20040201
  3. IRON [Concomitant]

REACTIONS (6)
  - ANAEMIA [None]
  - CELLULITIS [None]
  - OEDEMA PERIPHERAL [None]
  - RASH ERYTHEMATOUS [None]
  - RASH PRURITIC [None]
  - SKIN ULCER [None]
